FAERS Safety Report 8007623-1 (Version None)
Quarter: 2011Q4

REPORT INFORMATION
  Report Type: 
  Country: None (occurrence: None)
  Receive Date: 20111227
  Receipt Date: 20111220
  Transmission Date: 20120403
  Serious: Yes (Other)
  Sender: FDA-Public Use
  Company Number: AU-ABBOTT-11P-008-0857116-00

PATIENT
  Sex: Female
  Weight: 73 kg

DRUGS (1)
  1. HUMIRA [Suspect]
     Indication: PSORIASIS
     Dates: start: 20110707, end: 20110912

REACTIONS (4)
  - BASEDOW'S DISEASE [None]
  - LETHARGY [None]
  - MALAISE [None]
  - INFLUENZA LIKE ILLNESS [None]
